FAERS Safety Report 5295183-8 (Version None)
Quarter: 2007Q2

REPORT INFORMATION
  Report Type: 
  Country: None (occurrence: None)
  Receive Date: 20070412
  Receipt Date: 20070403
  Transmission Date: 20071010
  Serious: Yes (Death, Life-Threatening, Hospitalization, Disabling, Other)
  Sender: FDA-Public Use
  Company Number: FR-ELI_LILLY_AND_COMPANY-FR200704000432

PATIENT
  Age: 48 Year
  Sex: Male

DRUGS (12)
  1. CYCLOSERINE [Suspect]
     Indication: PULMONARY TUBERCULOSIS
     Dosage: 500 MG, 2/D
     Route: 048
     Dates: start: 20060613
  2. ETHAMBUTOL HYDROCHLORIDE [Concomitant]
     Indication: PULMONARY TUBERCULOSIS
     Dosage: 2 D/F, EACH MORNING
     Dates: start: 20060520, end: 20060613
  3. RIMIFON [Concomitant]
     Indication: PULMONARY TUBERCULOSIS
     Dosage: 200 MG, DAILY (1/D)
     Dates: start: 20060520, end: 20060613
  4. PIRILENE [Concomitant]
     Indication: PULMONARY TUBERCULOSIS
     Dosage: 1000 MG, EACH MORNING
     Dates: start: 20060520, end: 20060613
  5. IZILOX [Concomitant]
     Indication: PULMONARY TUBERCULOSIS
     Dosage: 400 MG, DAILY (1/D)
     Route: 048
     Dates: start: 20060520, end: 20060612
  6. IZILOX [Concomitant]
     Dosage: 400 MG, 2/D
     Route: 048
     Dates: start: 20060613
  7. AMIKACIN [Concomitant]
     Indication: PULMONARY TUBERCULOSIS
     Dosage: 500 MG, 2/D
     Route: 030
     Dates: start: 20060520, end: 20060612
  8. AMIKACIN [Concomitant]
     Dosage: 500 MG, DAILY (1/D)
     Route: 030
     Dates: start: 20060613, end: 20060619
  9. ZYVOX [Concomitant]
     Indication: PULMONARY TUBERCULOSIS
     Dosage: 600 MG, 2/D
     Route: 048
     Dates: start: 20060613, end: 20061006
  10. PARA-AMINOSALICYLATE ACID POWDER [Concomitant]
     Indication: PULMONARY TUBERCULOSIS
     Dosage: 6 G, 2/D
     Route: 048
     Dates: start: 20060613
  11. ETHIONAMIDE [Concomitant]
     Indication: PULMONARY TUBERCULOSIS
     Dosage: 500 MG, 2/D
     Dates: start: 20060613, end: 20060811
  12. CAPREOMYCIN [Concomitant]
     Indication: PULMONARY TUBERCULOSIS
     Dosage: 1 G, DAILY (1/D)
     Dates: start: 20060619, end: 20060801

REACTIONS (16)
  - ABDOMINAL DISTENSION [None]
  - ABDOMINAL PAIN [None]
  - ABDOMINAL PAIN UPPER [None]
  - DEAFNESS BILATERAL [None]
  - DRUG TOXICITY [None]
  - GASTROINTESTINAL DISORDER [None]
  - GENERAL PHYSICAL HEALTH DETERIORATION [None]
  - HEPATIC FAILURE [None]
  - HYPOTHYROIDISM [None]
  - LACTIC ACIDOSIS [None]
  - NORMOCHROMIC NORMOCYTIC ANAEMIA [None]
  - PERICARDIAL EFFUSION [None]
  - PERICARDITIS TUBERCULOUS [None]
  - PERIPHERAL SENSORY NEUROPATHY [None]
  - VISUAL ACUITY REDUCED [None]
  - VOMITING [None]
